FAERS Safety Report 24996056 (Version 1)
Quarter: 2025Q1

REPORT INFORMATION
  Report Type: Spontaneous
  Country: US (occurrence: US)
  Receive Date: 20250221
  Receipt Date: 20250221
  Transmission Date: 20250408
  Serious: No
  Sender: CATALYST PHARMA
  Company Number: US-CATALYST PHARMACEUTICALS-US-CATA-25-00018

PATIENT
  Age: 9 Year
  Sex: Male
  Weight: 36.735 kg

DRUGS (4)
  1. AGAMREE [Suspect]
     Active Substance: VAMOROLONE
     Indication: Duchenne muscular dystrophy
     Dosage: 5.7 ML ONCE DAILY
     Route: 048
     Dates: start: 20240517, end: 20240716
  2. AGAMREE [Suspect]
     Active Substance: VAMOROLONE
     Dosage: 5.5 ML ONCE DAILY
     Route: 048
     Dates: start: 20240716
  3. VITAMINS [Concomitant]
     Active Substance: VITAMINS
     Indication: Hypovitaminosis
     Dosage: ONCE DAILY
     Route: 065
  4. VITAMIN D3 [Concomitant]
     Active Substance: CHOLECALCIFEROL
     Indication: Hypovitaminosis
     Dosage: 25 MCG ONCE DAILY
     Route: 065

REACTIONS (1)
  - Mood altered [Not Recovered/Not Resolved]

NARRATIVE: CASE EVENT DATE: 20241201
